FAERS Safety Report 9723042 (Version 3)
Quarter: 2014Q1

REPORT INFORMATION
  Report Type: Spontaneous
  Country: IT (occurrence: IT)
  Receive Date: 20131202
  Receipt Date: 20140127
  Transmission Date: 20141002
  Serious: Yes (Other)
  Sender: FDA-Public Use
  Company Number: IT-ASTRAZENECA-2013SE85743

PATIENT
  Age: 3929 Week
  Sex: Male

DRUGS (7)
  1. ZESTORETIC [Suspect]
     Indication: HYPERTENSION
     Dosage: 20MG+12.5 MG TABLETS, 1.5 DF DAILY
     Route: 048
     Dates: start: 20120101, end: 20131108
  2. ASA [Suspect]
     Indication: CORONARY ARTERY DISEASE
     Route: 048
     Dates: start: 20120101, end: 20131108
  3. TORVAST [Concomitant]
     Indication: DYSLIPIDAEMIA
     Route: 048
     Dates: start: 20120101, end: 20131108
  4. GLIBOMET [Concomitant]
     Indication: DIABETES MELLITUS
     Dosage: 400MG+2.5MG , 3 DF, UNKNOWN FREQUENCY
     Route: 048
     Dates: start: 20120101, end: 20131108
  5. NORVASC [Concomitant]
     Indication: HYPERTENSION
     Route: 048
     Dates: start: 20120101, end: 20131108
  6. NORVASC [Concomitant]
     Indication: HYPERTENSION
     Route: 048
  7. TEGRETOL [Concomitant]
     Indication: EPILEPSY
     Route: 048
     Dates: start: 20120101, end: 20131108

REACTIONS (1)
  - Hyperkalaemia [Recovering/Resolving]
